FAERS Safety Report 7661760-X (Version None)
Quarter: 2011Q3

REPORT INFORMATION
  Report Type: 
  Country: None (occurrence: None)
  Receive Date: 20110805
  Receipt Date: 20101026
  Transmission Date: 20111222
  Serious: No
  Sender: FDA-Public Use
  Company Number: US-ABBOTT-10P-163-0681610-00

PATIENT
  Sex: Female
  Weight: 145.28 kg

DRUGS (2)
  1. LIPITOR [Concomitant]
     Indication: BLOOD CHOLESTEROL INCREASED
  2. NIASPAN [Suspect]
     Indication: BLOOD CHOLESTEROL INCREASED
     Dates: start: 20101001

REACTIONS (6)
  - FAECAL INCONTINENCE [None]
  - VOMITING [None]
  - FALL [None]
  - LOSS OF CONSCIOUSNESS [None]
  - FLUSHING [None]
  - LOCAL SWELLING [None]
